FAERS Safety Report 5971345-9 (Version None)
Quarter: 2008Q4

REPORT INFORMATION
  Report Type: 
  Country: None (occurrence: None)
  Receive Date: 20081128
  Receipt Date: 20081121
  Transmission Date: 20090506
  Serious: Yes (Hospitalization)
  Sender: FDA-Public Use
  Company Number: FR-PFIZER INC-2008099471

PATIENT
  Age: 18 Year
  Sex: Male

DRUGS (5)
  1. CHANTIX [Suspect]
     Dosage: DAILY DOSE:1MG
     Route: 048
     Dates: start: 20081017, end: 20081024
  2. PRAZEPAM [Concomitant]
  3. ALL OTHER THERAPEUTIC PRODUCTS [Concomitant]
  4. BETAMETHASONE [Concomitant]
  5. DOMPERIDONE [Concomitant]

REACTIONS (3)
  - ABNORMAL BEHAVIOUR [None]
  - NIGHTMARE [None]
  - SUICIDE ATTEMPT [None]
